FAERS Safety Report 9769460 (Version 3)
Quarter: 2015Q2

REPORT INFORMATION
  Report Type: Report from Study
  Country: DE (occurrence: DE)
  Receive Date: 20131218
  Receipt Date: 20150511
  Transmission Date: 20150821
  Serious: Yes (Other)
  Sender: FDA-Public Use
  Company Number: DE-SA-2013SA129627

PATIENT
  Sex: Female

DRUGS (3)
  1. ELTROXIN [Concomitant]
     Active Substance: LEVOTHYROXINE
     Indication: HYPOTHYROIDISM
     Route: 048
     Dates: end: 201312
  2. AUBAGIO [Suspect]
     Active Substance: TERIFLUNOMIDE
     Indication: MULTIPLE SCLEROSIS
     Route: 048
     Dates: start: 20131202
  3. AUBAGIO [Suspect]
     Active Substance: TERIFLUNOMIDE
     Indication: MULTIPLE SCLEROSIS
     Route: 048
     Dates: start: 20131202

REACTIONS (11)
  - Goitre [Unknown]
  - Menstruation irregular [Recovered/Resolved]
  - Ovarian cyst [Recovered/Resolved]
  - Nasopharyngitis [Not Recovered/Not Resolved]
  - Gamma-glutamyltransferase increased [Recovered/Resolved]
  - Hyperthyroidism [Unknown]
  - Oropharyngeal pain [Unknown]
  - Premenstrual pain [Unknown]
  - Alanine aminotransferase increased [Recovered/Resolved]
  - Dysphagia [Unknown]
  - Acute tonsillitis [Not Recovered/Not Resolved]

NARRATIVE: CASE EVENT DATE: 201312
